FAERS Safety Report 8343795-7 (Version None)
Quarter: 2012Q2

REPORT INFORMATION
  Report Type: 
  Country: None (occurrence: None)
  Receive Date: 20120508
  Receipt Date: 20120502
  Transmission Date: 20120825
  Serious: No
  Sender: FDA-Public Use
  Company Number: US-TEVA-336538USA

PATIENT
  Age: 17 Year
  Sex: Female

DRUGS (3)
  1. LORAZEPAM [Concomitant]
  2. COPAXONE [Suspect]
     Indication: MULTIPLE SCLEROSIS
     Dosage: 20 MILLIGRAM;
     Route: 058
  3. CITALOPRAM HYDROBROMIDE [Concomitant]

REACTIONS (6)
  - FLUSHING [None]
  - URTICARIA [None]
  - VOMITING [None]
  - PRURITUS [None]
  - HEADACHE [None]
  - DIARRHOEA [None]
